FAERS Safety Report 18129916 (Version 1)
Quarter: 2020Q3

REPORT INFORMATION
  Report Type: Spontaneous
  Country: US (occurrence: US)
  Receive Date: 20200810
  Receipt Date: 20200810
  Transmission Date: 20201103
  Serious: No
  Sender: FDA-Public Use
  Company Number: US-PERRIGO-20US006253

PATIENT
  Sex: Male
  Weight: 110.2 kg

DRUGS (3)
  1. MULTIVITAMINS, PLAIN [Concomitant]
     Active Substance: VITAMINS
     Indication: SUPPLEMENTATION THERAPY
     Dosage: UNK
     Route: 065
  2. LORATADINE. [Suspect]
     Active Substance: LORATADINE
     Indication: EYE PRURITUS
     Dosage: 10 MG, QD FOR 2 WEEKS
     Route: 048
     Dates: start: 2019, end: 2019
  3. LORATADINE. [Suspect]
     Active Substance: LORATADINE
     Indication: LACRIMATION INCREASED
     Dosage: 10 MG, SINGLE
     Route: 048
     Dates: start: 20200428, end: 20200428

REACTIONS (1)
  - Drug ineffective [Unknown]

NARRATIVE: CASE EVENT DATE: 2019
